FAERS Safety Report 7170482-3 (Version None)
Quarter: 2010Q4

REPORT INFORMATION
  Report Type: 
  Country: None (occurrence: None)
  Receive Date: 20101214
  Receipt Date: 20101214
  Transmission Date: 20110411
  Serious: No
  Sender: FDA-Public Use
  Company Number: None

PATIENT
  Age: 66 Year
  Sex: Male
  Weight: 90.2 kg

DRUGS (2)
  1. REGADENOSON [Suspect]
     Indication: DIAGNOSTIC PROCEDURE
     Dosage: 0.4 MG ONCE IV
     Route: 042
     Dates: start: 20100930, end: 20100930
  2. REGADENOSON [Suspect]
     Indication: MUCOPOLYSACCHARIDOSIS
     Dosage: 0.4 MG ONCE IV
     Route: 042
     Dates: start: 20100930, end: 20100930

REACTIONS (3)
  - COUGH [None]
  - DYSPNOEA [None]
  - WHEEZING [None]
